FAERS Safety Report 15631912 (Version 7)
Quarter: 2020Q3

REPORT INFORMATION
  Report Type: Other
  Country: CA (occurrence: CA)
  Receive Date: 20181119
  Receipt Date: 20200609
  Transmission Date: 20201104
  Serious: Yes (Other)
  Sender: FDA-Public Use
  Company Number: CA-ASTELLAS-2018US049102

PATIENT
  Age: 38 Year
  Sex: Male

DRUGS (42)
  1. LINEZOLID. [Suspect]
     Active Substance: LINEZOLID
     Dosage: UNK, EVERY 12 HOURS
     Route: 047
  2. MAXIDEX [Suspect]
     Active Substance: DEXAMETHASONE
     Indication: IRIDOCYCLITIS
     Dosage: UNK, UNKNOWN FREQ.
     Route: 047
  3. SALICYLIC ACID;TRIAMCINOLONE [Suspect]
     Active Substance: SALICYLIC ACID\TRIAMCINOLONE ACETONIDE
     Indication: UVEITIS
     Dosage: UNK, UNKNOWN FREQ.
     Route: 065
  4. PIPERACILLIN SODIUM [Suspect]
     Active Substance: PIPERACILLIN SODIUM
     Indication: ENDOPHTHALMITIS
     Dosage: UNK UNK, UNKNOWN FREQ.
     Route: 047
  5. SALICYLIC ACID. [Suspect]
     Active Substance: SALICYLIC ACID
     Indication: PRODUCT USED FOR UNKNOWN INDICATION
  6. VANCOMYCIN [Suspect]
     Active Substance: VANCOMYCIN
     Indication: PSEUDOMONAS INFECTION
     Dosage: UNK UNK, UNKNOWN FREQ.
     Route: 065
  7. PIPERACILLIN AND TAZOBACTAM [Suspect]
     Active Substance: PIPERACILLIN SODIUM\TAZOBACTAM SODIUM
     Indication: ENDOPHTHALMITIS
     Dosage: UNK UNK, UNKNOWN FREQ.
     Route: 065
  8. DEXAMETHASONE SODIUM PHOSPHATE. [Concomitant]
     Active Substance: DEXAMETHASONE SODIUM PHOSPHATE
     Indication: IRIDOCYCLITIS
     Dosage: UNK UNK, UNKNOWN FREQ.
     Route: 065
  9. TACROLIMUS. [Suspect]
     Active Substance: TACROLIMUS
     Indication: IMMUNOSUPPRESSANT DRUG THERAPY
     Dosage: UNK UNK, UNKNOWN FREQ.
     Route: 065
  10. CEFTAZIDIME. [Suspect]
     Active Substance: CEFTAZIDIME
     Indication: ENDOPHTHALMITIS
     Dosage: UNK UNK, UNKNOWN FREQ.
     Route: 047
  11. MYCOPHENOLATE MOFETIL. [Suspect]
     Active Substance: MYCOPHENOLATE MOFETIL
     Indication: IMMUNOSUPPRESSANT DRUG THERAPY
     Dosage: UNK, UNKNOWN FREQ.
     Route: 065
  12. VORICONAZOLE. [Suspect]
     Active Substance: VORICONAZOLE
     Indication: ENDOPHTHALMITIS
     Dosage: UNK, UNKNOWN FREQ.
     Route: 065
  13. VORICONAZOLE. [Suspect]
     Active Substance: VORICONAZOLE
     Indication: PSEUDOMONAS INFECTION
     Dosage: UNK, UNKNOWN FREQ.
     Route: 065
  14. PREDNISOLONE. [Suspect]
     Active Substance: PREDNISOLONE
     Indication: IRIDOCYCLITIS
     Dosage: UNK UNK, UNKNOWN FREQ.
     Route: 047
  15. VANCOMYCIN HYDROCHLORIDE. [Suspect]
     Active Substance: VANCOMYCIN HYDROCHLORIDE
     Indication: PSEUDOMONAS INFECTION
     Dosage: UNK, UNKNOWN FREQ.
     Route: 065
  16. VANCOMYCIN HYDROCHLORIDE. [Suspect]
     Active Substance: VANCOMYCIN HYDROCHLORIDE
     Indication: ENDOPHTHALMITIS
     Dosage: UNK, UNKNOWN FREQ.
     Route: 047
  17. PREDNISOLONE SODIUM PHOSPHATE. [Suspect]
     Active Substance: PREDNISOLONE SODIUM PHOSPHATE
     Indication: ENDOPHTHALMITIS
  18. TRIAMCINOLONE ACETONIDE. [Suspect]
     Active Substance: TRIAMCINOLONE ACETONIDE
     Indication: UVEITIS
     Dosage: UNK UNK, UNKNOWN FREQ.(SUSPENSION INTRA?ARTICULAR)
     Route: 014
  19. SALICYLIC ACID;TRIAMCINOLONE ACETONIDE ACETATE [Suspect]
     Active Substance: SALICYLIC ACID\TRIAMCINOLONE ACETONIDE
     Indication: UVEITIS
     Dosage: UNK UNK, UNKNOWN FREQ.
     Route: 065
  20. MOXIFLOXACIN. [Suspect]
     Active Substance: MOXIFLOXACIN
     Indication: ENDOPHTHALMITIS
     Dosage: UNK, UNKNOWN FREQ.
     Route: 047
  21. PIPERACILLIN SODIUM;TAZOBACTAM [Suspect]
     Active Substance: PIPERACILLIN SODIUM\TAZOBACTAM SODIUM
     Indication: ENDOPHTHALMITIS
     Dosage: UNK, UNKNOWN FREQ.
     Route: 065
  22. PREDNISONE. [Suspect]
     Active Substance: PREDNISONE
     Indication: UVEITIS
     Dosage: UNK UNK, UNKNOWN FREQ.
     Route: 065
  23. PREDNISONE. [Suspect]
     Active Substance: PREDNISONE
     Dosage: UNK UNK, UNKNOWN FREQ.
     Route: 065
  24. PREDNISONE. [Suspect]
     Active Substance: PREDNISONE
     Dosage: UNK UNK, UNKNOWN FREQ.
     Route: 065
  25. SALICYLIC ACID. [Suspect]
     Active Substance: SALICYLIC ACID
     Indication: UVEITIS
     Dosage: UNK UNK, UNKNOWN FREQ.
     Route: 065
  26. HOMATROPINE [Concomitant]
     Active Substance: HOMATROPINE HYDROBROMIDE
     Indication: IRIDOCYCLITIS
     Dosage: 2 EVERY, ONCE DAILY
     Route: 065
  27. CIPROFLOXACIN. [Suspect]
     Active Substance: CIPROFLOXACIN
     Indication: ENDOPHTHALMITIS
     Dosage: UNK, UNKNOWN FREQ.
     Route: 065
  28. VANCOMYCIN [Suspect]
     Active Substance: VANCOMYCIN
     Indication: ENDOPHTHALMITIS
     Dosage: UNK UNK, UNKNOWN FREQ.
     Route: 047
  29. VANCOMYCIN [Suspect]
     Active Substance: VANCOMYCIN
     Indication: PSEUDOMONAS INFECTION
     Dosage: UNK UNK, UNKNOWN FREQ.
     Route: 065
  30. VANCOMYCIN [Suspect]
     Active Substance: VANCOMYCIN
     Indication: ENDOPHTHALMITIS
  31. COLISTIN [Suspect]
     Active Substance: COLISTIN
     Indication: PSEUDOMONAS INFECTION
     Dosage: UNK, UNKNOWN FREQ.
     Route: 047
  32. HOMATROPINE HYDROBROMIDE. [Suspect]
     Active Substance: HOMATROPINE HYDROBROMIDE
     Indication: IRIDOCYCLITIS
     Dosage: 2 EVERY, ONCE DAILY
     Route: 047
  33. HOMATROPINE HYDROBROMIDE. [Suspect]
     Active Substance: HOMATROPINE HYDROBROMIDE
     Indication: ANTIINFLAMMATORY THERAPY
     Dosage: UNK UNK, EVERY 12 HOURS
     Route: 065
  34. PREDNISOLONE SODIUM PHOSPHATE. [Suspect]
     Active Substance: PREDNISOLONE SODIUM PHOSPHATE
     Indication: IRIDOCYCLITIS
     Dosage: UNK UNK, UNKNOWN FREQ.
     Route: 047
  35. TOBRAMYCIN. [Suspect]
     Active Substance: TOBRAMYCIN
     Indication: PSEUDOMONAS INFECTION
     Dosage: UNK, UNKNOWN FREQ.
     Route: 042
  36. PREDNISOLONE. [Suspect]
     Active Substance: PREDNISOLONE
     Indication: ANTIINFLAMMATORY THERAPY
  37. HOMATROPINE [Concomitant]
     Active Substance: HOMATROPINE HYDROBROMIDE
     Dosage: UNK UNK, EVERY 12 HOURS
     Route: 065
  38. AMPHOTERICIN B, LIPOSOME [Suspect]
     Active Substance: AMPHOTERICIN B
     Indication: ENDOPHTHALMITIS
     Dosage: UNK UNK, UNKNOWN FREQ.
     Route: 047
  39. CIPROFLOXACIN. [Suspect]
     Active Substance: CIPROFLOXACIN
     Indication: PSEUDOMONAS INFECTION
  40. LINEZOLID. [Suspect]
     Active Substance: LINEZOLID
     Indication: ENDOPHTHALMITIS
     Dosage: UNK, UNKNOWN FREQ.
     Route: 042
  41. PREDNISONE. [Suspect]
     Active Substance: PREDNISONE
     Indication: IMMUNOSUPPRESSANT DRUG THERAPY
     Dosage: UNK UNK, UNKNOWN FREQ.
     Route: 048
  42. TAZOBACTAM SODIUM [Suspect]
     Active Substance: TAZOBACTAM SODIUM
     Indication: ENDOPHTHALMITIS
     Dosage: UNK UNK, UNKNOWN FREQ.
     Route: 065

REACTIONS (12)
  - Uveitis [Not Recovered/Not Resolved]
  - Drug ineffective [Not Recovered/Not Resolved]
  - Choroiditis [Not Recovered/Not Resolved]
  - Intraocular pressure increased [Not Recovered/Not Resolved]
  - Condition aggravated [Not Recovered/Not Resolved]
  - Product use in unapproved indication [Unknown]
  - Visual acuity reduced [Not Recovered/Not Resolved]
  - Eye pain [Not Recovered/Not Resolved]
  - Iridocyclitis [Unknown]
  - Endophthalmitis [Not Recovered/Not Resolved]
  - Eye abscess [Unknown]
  - Product use issue [Not Recovered/Not Resolved]
